FAERS Safety Report 19675967 (Version 1)
Quarter: 2021Q3

REPORT INFORMATION
  Report Type: Spontaneous
  Country: US (occurrence: US)
  Receive Date: 20210809
  Receipt Date: 20210809
  Transmission Date: 20211014
  Serious: Yes (Other)
  Sender: FDA-Public Use
  Company Number: US-SA-2021SA261253

PATIENT
  Sex: Female

DRUGS (4)
  1. LOSARTAN POTASSIUM. [Concomitant]
     Active Substance: LOSARTAN POTASSIUM
  2. METOPROLOL SUCCINATE. [Concomitant]
     Active Substance: METOPROLOL SUCCINATE
  3. AUBAGIO [Suspect]
     Active Substance: TERIFLUNOMIDE
     Indication: MULTIPLE SCLEROSIS
     Dosage: 14 MG, QD
     Route: 048
     Dates: start: 2017
  4. ERTAPENEM. [Concomitant]
     Active Substance: ERTAPENEM SODIUM
     Dosage: 1 G VIAL

REACTIONS (12)
  - Localised infection [Unknown]
  - Constipation [Unknown]
  - Dyskinesia [Unknown]
  - Muscular weakness [Unknown]
  - Muscle spasms [Unknown]
  - Urinary incontinence [Unknown]
  - Sleep disorder [Unknown]
  - Memory impairment [Unknown]
  - Osteomyelitis [Unknown]
  - Diarrhoea [Unknown]
  - Dizziness [Unknown]
  - Cognitive disorder [Unknown]
